FAERS Safety Report 4682182-X (Version None)
Quarter: 2005Q2

REPORT INFORMATION
  Report Type: 
  Country: None (occurrence: None)
  Receive Date: 20050602
  Receipt Date: 20050531
  Transmission Date: 20051028
  Serious: Yes (Hospitalization)
  Sender: FDA-Public Use
  Company Number: TCI2005A02533

PATIENT
  Age: 88 Year
  Sex: Male

DRUGS (11)
  1. LANSOPRAZOLE [Suspect]
     Indication: STOMACH DISCOMFORT
     Dosage: 15 MG (15 MG, 1 IN 1 D)
     Route: 048
     Dates: start: 20050406, end: 20050419
  2. LENDORM [Concomitant]
  3. LANIRAPID (METILDIGOXIN) [Concomitant]
  4. LASIX [Concomitant]
  5. SIGMART (NICORANDIL) [Concomitant]
  6. ASPIRIN [Concomitant]
  7. ALLOPURINOL [Concomitant]
  8. SELBEX (TEPRENONE) [Concomitant]
  9. MUCOSALVAN L (AMBROXOL HYDROCHLORIDE) [Concomitant]
  10. SENNOSIDE (SENNOSIDE) [Concomitant]
  11. STICK ZENOL (STICK ZENOL) [Concomitant]

REACTIONS (13)
  - ABDOMINAL PAIN [None]
  - CARDIAC FAILURE [None]
  - CONJUNCTIVAL HYPERAEMIA [None]
  - COUGH [None]
  - CREPITATIONS [None]
  - DRUG HYPERSENSITIVITY [None]
  - ECZEMA [None]
  - HYPOXIA [None]
  - INFECTION [None]
  - PRURITUS [None]
  - PYREXIA [None]
  - RASH ERYTHEMATOUS [None]
  - RASH PAPULAR [None]
